FAERS Safety Report 6983503-5 (Version None)
Quarter: 2010Q3

REPORT INFORMATION
  Report Type: 
  Country: None (occurrence: None)
  Receive Date: 20100914
  Receipt Date: 20100914
  Transmission Date: 20110219
  Serious: Yes (Other)
  Sender: FDA-Public Use
  Company Number: None

PATIENT
  Sex: Female

DRUGS (2)
  1. CIMZIA [Suspect]
     Indication: CROHN'S DISEASE
     Dates: start: 20100728
  2. CIMZIA [Suspect]
     Indication: CROHN'S DISEASE
     Dates: start: 20100811

REACTIONS (4)
  - CONTUSION [None]
  - MUSCULAR WEAKNESS [None]
  - PHARYNGITIS STREPTOCOCCAL [None]
  - SKIN EXFOLIATION [None]
